FAERS Safety Report 5205856-0 (Version None)
Quarter: 2007Q1

REPORT INFORMATION
  Report Type: 
  Country: None (occurrence: None)
  Receive Date: 20070105
  Receipt Date: 20070105
  Transmission Date: 20070707
  Serious: Yes (Death)
  Sender: FDA-Public Use
  Company Number: None

PATIENT
  Age: 3 Year
  Sex: Female
  Weight: 14.9 kg

DRUGS (16)
  1. PROTAMINE SULFATE INJ [Suspect]
     Indication: HEPARIN NEUTRALISATION THERAPY
     Dosage: 15 MG -1.5 ML- 1 DOSE IV BOLUS
     Route: 040
     Dates: start: 20061122, end: 20061122
  2. PROTAMINE SULFATE INJ [Suspect]
     Indication: SURGERY
     Dosage: 15 MG -1.5 ML- 1 DOSE IV BOLUS
     Route: 040
     Dates: start: 20061122, end: 20061122
  3. MIDAZOLAM HYDROCHLORIDE [Concomitant]
  4. FENTANYL TRANSDERMAL SYSTEM [Concomitant]
  5. MORPHINE [Concomitant]
  6. PANCURONIUM [Concomitant]
  7. VECURONIUM BROMIDE [Concomitant]
  8. HEPARIN [Concomitant]
  9. AMINOCAPROIC ACID [Concomitant]
  10. CARDIOPLEGIA SOLUTION [Concomitant]
  11. CEFAZOLIN [Concomitant]
  12. HEPARIN [Concomitant]
  13. ALBUMIN (HUMAN) [Concomitant]
  14. SODIUM BICARBONATE [Concomitant]
  15. MANNITOL [Concomitant]
  16. AMINOCAPROIC ACID [Concomitant]

REACTIONS (9)
  - BRADYCARDIA [None]
  - CEREBRAL ARTERY EMBOLISM [None]
  - DIALYSIS [None]
  - EMBOLISM [None]
  - HYPOTENSION [None]
  - PROCEDURAL COMPLICATION [None]
  - PULMONARY HYPERTENSION [None]
  - RENAL FAILURE [None]
  - SYSTEMIC MYCOSIS [None]
